FAERS Safety Report 4313197-9 (Version None)
Quarter: 2004Q1

REPORT INFORMATION
  Report Type: 
  Country: None (occurrence: None)
  Receive Date: 20040308
  Receipt Date: 20030814
  Transmission Date: 20041129
  Serious: Yes (Death, Other)
  Sender: FDA-Public Use
  Company Number: PHNU2003DE03105

PATIENT
  Age: 53 Year
  Sex: Male

DRUGS (17)
  1. XIMOVAN ^AVENTIS PHARMA^ [Interacting]
     Dosage: 7.5MG/DAY
     Route: 048
     Dates: start: 20030605
  2. CONCOR [Concomitant]
     Dosage: 2.5MG/DAY
     Route: 048
     Dates: start: 20030101
  3. AMARYL [Concomitant]
     Dosage: 2MG/DAY
     Route: 048
     Dates: start: 20030101
  4. SLOW SODIUM [Concomitant]
     Dosage: 2DF/DAY
     Route: 048
     Dates: start: 20030610
  5. PIRENZEPINE [Suspect]
     Dosage: 50MG/DAY
     Route: 048
     Dates: start: 20030619
  6. PIRENZEPINE [Suspect]
     Dosage: 25MG/DAY
     Route: 048
     Dates: start: 20030616, end: 20030618
  7. DIAZEPAM [Concomitant]
     Dosage: 5MG/DAY
     Route: 048
     Dates: start: 20030703, end: 20030707
  8. DIAZEPAM [Concomitant]
     Dosage: 4MG/DAY
     Route: 048
     Dates: start: 20030708, end: 20030711
  9. DIAZEPAM [Concomitant]
     Dosage: 3MG/DAY
     Route: 048
     Dates: start: 20030712, end: 20030717
  10. DIAZEPAM [Concomitant]
     Dosage: 2MG/DAY
     Route: 048
     Dates: start: 20030718, end: 20030720
  11. DIAZEPAM [Concomitant]
     Dosage: 1MG/DAY
     Route: 048
     Dates: start: 20030721, end: 20030722
  12. BIFITERAL ^SOLVAY ARZNEIMITTEL^ [Concomitant]
     Route: 048
     Dates: start: 20030712, end: 20030727
  13. CLOZARIL [Suspect]
     Indication: SCHIZOPHRENIA, PARANOID TYPE
     Dosage: 250MG/DAY
     Route: 048
     Dates: start: 20030611, end: 20030629
  14. CLOZARIL [Suspect]
     Dosage: 400MG/DAY
     Route: 048
     Dates: start: 20030630, end: 20030702
  15. CLOZARIL [Suspect]
     Dosage: 450MG/DAY
     Route: 048
     Dates: start: 20030703, end: 20030713
  16. CLOZARIL [Suspect]
     Dosage: 500MG/DAY
     Route: 048
     Dates: start: 20030714
  17. CLOZARIL [Suspect]
     Dosage: 25 TO 150 MG/DAY
     Route: 048
     Dates: start: 20030604, end: 20030610

REACTIONS (19)
  - ABDOMINAL PAIN [None]
  - ASPIRATION [None]
  - CARDIOMEGALY [None]
  - DRUG LEVEL ABOVE THERAPEUTIC [None]
  - GASTROINTESTINAL HAEMORRHAGE [None]
  - GASTROINTESTINAL MOTILITY DISORDER [None]
  - HAEMATEMESIS [None]
  - HEPATIC CONGESTION [None]
  - ILEUS PARALYTIC [None]
  - MALLORY-WEISS SYNDROME [None]
  - NAUSEA [None]
  - OESOPHAGITIS [None]
  - RENAL DISORDER [None]
  - RESPIRATORY FAILURE [None]
  - RESUSCITATION [None]
  - SHOCK HAEMORRHAGIC [None]
  - SPLEEN CONGESTION [None]
  - URINARY INCONTINENCE [None]
  - VOMITING [None]
